FAERS Safety Report 7079500-4 (Version None)
Quarter: 2010Q4

REPORT INFORMATION
  Report Type: 
  Country: None (occurrence: None)
  Receive Date: 20101102
  Receipt Date: 20101020
  Transmission Date: 20110411
  Serious: Yes (Hospitalization)
  Sender: FDA-Public Use
  Company Number: AU-ELI_LILLY_AND_COMPANY-AU201007006557

PATIENT
  Sex: Male
  Weight: 35.8 kg

DRUGS (2)
  1. STRATTERA [Suspect]
     Indication: ATTENTION DEFICIT/HYPERACTIVITY DISORDER
     Dosage: 18 MG, DAILY (1/D)
     Route: 048
     Dates: start: 20091008, end: 20091014
  2. STRATTERA [Suspect]
     Dosage: 18 MG, 2/D
     Route: 048
     Dates: start: 20091015, end: 20091119

REACTIONS (1)
  - PANCREATITIS [None]
